FAERS Safety Report 12224926 (Version 8)
Quarter: 2016Q4

REPORT INFORMATION
  Report Type: Spontaneous
  Country: US (occurrence: US)
  Receive Date: 20160331
  Receipt Date: 20161222
  Transmission Date: 20170207
  Serious: Yes (Death)
  Sender: FDA-Public Use
  Company Number: US-PFIZER INC-2016172738

PATIENT
  Age: 71 Year
  Sex: Male
  Weight: 72 kg

DRUGS (6)
  1. SUTENT [Suspect]
     Active Substance: SUNITINIB MALATE
     Indication: METASTATIC RENAL CELL CARCINOMA
     Dosage: 37.5 MG, CYCLIC (28 DAYS ON/14 DAYS OFF)
     Dates: start: 20160311, end: 20160525
  2. AMARYL [Concomitant]
     Active Substance: GLIMEPIRIDE
     Dosage: UNK
  3. VITAMIN B12 [Concomitant]
     Active Substance: CYANOCOBALAMIN
     Dosage: UNK
  4. KEPPRA [Concomitant]
     Active Substance: LEVETIRACETAM
     Dosage: UNK
  5. COLACE [Concomitant]
     Active Substance: DOCUSATE SODIUM
     Dosage: UNK
  6. ASPIRIN /00002701/ [Concomitant]
     Active Substance: ASPIRIN
     Dosage: UNK

REACTIONS (14)
  - Death [Fatal]
  - Blood calcium decreased [Unknown]
  - Tremor [Unknown]
  - Dysarthria [Unknown]
  - Blood glucose decreased [Unknown]
  - Dry skin [Unknown]
  - Memory impairment [Unknown]
  - Irritability [Unknown]
  - Hypersomnia [Unknown]
  - Lacrimation increased [Unknown]
  - Decreased appetite [Unknown]
  - Blood pressure increased [Unknown]
  - Fatigue [Unknown]
  - Asthenia [Unknown]

NARRATIVE: CASE EVENT DATE: 20160420
